FAERS Safety Report 18697360 (Version 3)
Quarter: 2021Q1

REPORT INFORMATION
  Report Type: Spontaneous
  Country: US (occurrence: US)
  Receive Date: 20210104
  Receipt Date: 20210210
  Transmission Date: 20210419
  Serious: No
  Sender: FDA-Public Use
  Company Number: NVSC2020US344116

PATIENT
  Age: 70 Year
  Sex: Female

DRUGS (5)
  1. ARTIFICIAL TEARS [Concomitant]
     Active Substance: GLYCERIN\HYPROMELLOSES\POLYETHYLENE GLYCOL 400
     Indication: DRY EYE
     Route: 065
  2. RESTASIS [Concomitant]
     Active Substance: CYCLOSPORINE
     Indication: PRODUCT USED FOR UNKNOWN INDICATION
     Dosage: UNK
     Route: 065
  3. XIIDRA [Suspect]
     Active Substance: LIFITEGRAST
     Dosage: 1 GTT, QD
     Route: 047
  4. XIIDRA [Suspect]
     Active Substance: LIFITEGRAST
     Indication: DRY EYE
     Dosage: UNK
     Route: 047
     Dates: start: 20201222
  5. ALREX [Concomitant]
     Active Substance: LOTEPREDNOL ETABONATE
     Indication: PRODUCT USED FOR UNKNOWN INDICATION
     Dosage: UNK
     Route: 065

REACTIONS (5)
  - Eye discharge [Unknown]
  - Abnormal sensation in eye [Unknown]
  - Drug hypersensitivity [Unknown]
  - Conjunctival hyperaemia [Unknown]
  - Eye irritation [Unknown]

NARRATIVE: CASE EVENT DATE: 202012
